FAERS Safety Report 8783232 (Version 2)
Quarter: 2012Q4

REPORT INFORMATION
  Report Type: 
  Country: JP (occurrence: JP)
  Receive Date: 20120913
  Receipt Date: 20121018
  Transmission Date: 20130627
  Serious: Yes (Hospitalization)
  Sender: FDA-Public Use
  Company Number: JP-BAYER-2012-095201

PATIENT
  Age: 85 Year
  Sex: Male
  Weight: 51 kg

DRUGS (4)
  1. NEXAVAR [Suspect]
     Indication: HEPATIC NEOPLASM MALIGNANT
     Dosage: 200 mg, BID
     Route: 048
     Dates: start: 20120825, end: 20120907
  2. NEXAVAR [Suspect]
     Indication: HEPATIC NEOPLASM MALIGNANT
     Dosage: 400 mg, QD
     Route: 048
     Dates: start: 20121006, end: 20121008
  3. MUCODYNE [Concomitant]
     Dosage: Daily dose 1000 mg
     Route: 048
     Dates: start: 20120811
  4. MEDICON [Concomitant]
     Dosage: Daily dose 30 mg
     Route: 048

REACTIONS (5)
  - Pleural effusion [Unknown]
  - Haemoptysis [Recovered/Resolved]
  - Blood bilirubin increased [Recovered/Resolved]
  - Decreased appetite [Recovering/Resolving]
  - Hepatic function abnormal [Recovered/Resolved]
